FAERS Safety Report 4750810-6 (Version None)
Quarter: 2005Q3

REPORT INFORMATION
  Report Type: 
  Country: None (occurrence: None)
  Receive Date: 20050822
  Receipt Date: 20050805
  Transmission Date: 20060218
  Serious: Yes (Hospitalization)
  Sender: FDA-Public Use
  Company Number: 2005AL003109

PATIENT
  Age: 67 Year
  Sex: Female

DRUGS (2)
  1. KADIAN [Suspect]
     Dosage: 30 MG; BID; PO
     Route: 048
  2. PERCOCET [Concomitant]

REACTIONS (2)
  - DEPRESSED LEVEL OF CONSCIOUSNESS [None]
  - ORAL INTAKE REDUCED [None]
